FAERS Safety Report 9559966 (Version 1)
Quarter: 2013Q3

REPORT INFORMATION
  Report Type: Spontaneous
  Country: US (occurrence: None)
  Receive Date: 20130821
  Receipt Date: 20130821
  Transmission Date: 20140515
  Serious: No
  Sender: FDA-Public Use
  Company Number: 1000045105

PATIENT
  Age: 71 Year
  Sex: Male

DRUGS (4)
  1. TUDORZA PRESSAIR (ACLIDINIUM BROMIDE) (400 MICROGRAM, POWDER) [Suspect]
     Indication: CHRONIC OBSTRUCTIVE PULMONARY DISEASE
     Route: 055
     Dates: start: 201305
  2. PLAVIX (CLOPIDOGREL BISULFATE) [Concomitant]
  3. RAMIPRIL [Concomitant]
  4. METOPROLOL [Concomitant]

REACTIONS (1)
  - Eye pruritus [None]
